FAERS Safety Report 5092217-0 (Version None)
Quarter: 2006Q3

REPORT INFORMATION
  Report Type: 
  Country: None (occurrence: None)
  Receive Date: 20060829
  Receipt Date: 20060818
  Transmission Date: 20061208
  Serious: Yes (Other)
  Sender: FDA-Public Use
  Company Number: DE-ABBOTT-06P-062-0341618-00

PATIENT
  Age: 2 Year
  Sex: Female

DRUGS (2)
  1. VALPROATE SODIUM [Suspect]
     Indication: CONVULSION
     Dosage: NOT REPORTED
  2. ETHOSUXIMIDE [Concomitant]
     Indication: DRUG USE FOR UNKNOWN INDICATION

REACTIONS (7)
  - ANOREXIA [None]
  - APATHY [None]
  - COAGULOPATHY [None]
  - CONVULSION [None]
  - HEPATOTOXICITY [None]
  - PANCREATITIS [None]
  - REYE'S SYNDROME [None]
